FAERS Safety Report 9352301 (Version 1)
Quarter: 2013Q2

REPORT INFORMATION
  Report Type: Spontaneous
  Country: US (occurrence: US)
  Receive Date: 20130617
  Receipt Date: 20130617
  Transmission Date: 20140414
  Serious: No
  Sender: FDA-Public Use
  Company Number: US-009507513-1306USA006581

PATIENT
  Age: 19 Year
  Sex: Female
  Weight: 74.83 kg

DRUGS (1)
  1. IMPLANON [Suspect]
     Indication: CONTRACEPTION
     Dosage: 1 ROD, UPPER LEFT ARM
     Route: 059
     Dates: start: 20100611

REACTIONS (2)
  - Menstruation irregular [Unknown]
  - Weight increased [Unknown]
